FAERS Safety Report 19888543 (Version 1)
Quarter: 2021Q3

REPORT INFORMATION
  Report Type: Spontaneous
  Country: US (occurrence: US)
  Receive Date: 20210927
  Receipt Date: 20210927
  Transmission Date: 20211014
  Serious: No
  Sender: FDA-Public Use
  Company Number: US-KVK-TECH, INC-20210500066

PATIENT
  Sex: Male

DRUGS (2)
  1. OXYCODONE HYDROCHLORIDE TABLETS, USP [Suspect]
     Active Substance: OXYCODONE HYDROCHLORIDE
     Indication: PAIN
     Dosage: 5 MILLIGRAM
     Route: 048
     Dates: start: 20210428
  2. OXYCODONE [Concomitant]
     Active Substance: OXYCODONE
     Indication: PAIN
     Dosage: 5 MILLIGRAM
     Dates: start: 202003

REACTIONS (3)
  - Nausea [Unknown]
  - Drug ineffective [Unknown]
  - Pain [Unknown]
